FAERS Safety Report 5016846-5 (Version None)
Quarter: 2006Q2

REPORT INFORMATION
  Report Type: 
  Country: None (occurrence: None)
  Receive Date: 20060526
  Receipt Date: 20060508
  Transmission Date: 20061013
  Serious: Yes (Other)
  Sender: FDA-Public Use
  Company Number: GB200605001694

PATIENT
  Age: 39 Year
  Sex: Female

DRUGS (3)
  1. FLUOXETINE HCL [Suspect]
     Indication: DEPRESSION
     Dosage: 60 MG, ORAL
     Route: 048
     Dates: start: 20040701, end: 20060112
  2. OLANZAPINE [Concomitant]
  3. LORAZEPAM [Concomitant]

REACTIONS (2)
  - HYSTERECTOMY [None]
  - URINARY RETENTION [None]
